FAERS Safety Report 20532121 (Version 1)
Quarter: 2022Q1

REPORT INFORMATION
  Report Type: Spontaneous
  Country: US (occurrence: None)
  Receive Date: 20220301
  Receipt Date: 20220301
  Transmission Date: 20220423
  Serious: Yes (Hospitalization)
  Sender: FDA-Public Use
  Company Number: None

PATIENT
  Age: 10 Year
  Sex: Female
  Weight: 60.1 kg

DRUGS (5)
  1. CYCLOPHOSPHAMIDE [Suspect]
     Active Substance: CYCLOPHOSPHAMIDE
     Dates: end: 20220118
  2. CYTARABINE [Suspect]
     Active Substance: CYTARABINE
     Dates: end: 20220203
  3. MERCAPTOPURINE [Suspect]
     Active Substance: MERCAPTOPURINE
     Dates: end: 20220206
  4. ONCASPAR [Suspect]
     Active Substance: PEGASPARGASE
     Dosage: OTHER QUANTITY : 7500IU;?
     Dates: end: 20220207
  5. VINCRISTINE SULFATE [Suspect]
     Active Substance: VINCRISTINE SULFATE
     Dates: end: 20220214

REACTIONS (5)
  - Productive cough [None]
  - Body temperature increased [None]
  - Chills [None]
  - Neutropenia [None]
  - SARS-CoV-2 test positive [None]

NARRATIVE: CASE EVENT DATE: 20220221
